FAERS Safety Report 13870792 (Version 2)
Quarter: 2017Q3

REPORT INFORMATION
  Report Type: Spontaneous
  Country: JP (occurrence: JP)
  Receive Date: 20170816
  Receipt Date: 20170914
  Transmission Date: 20171127
  Serious: Yes (Hospitalization)
  Sender: FDA-Public Use
  Company Number: JP-ASTRAZENECA-2017SE81530

PATIENT
  Sex: Female

DRUGS (1)
  1. ARIMIDEX [Suspect]
     Active Substance: ANASTROZOLE
     Indication: BREAST CANCER FEMALE
     Dosage: GENERIC, 1 MG EVERY DAY
     Route: 048
     Dates: start: 20140714

REACTIONS (2)
  - Osteolysis [Not Recovered/Not Resolved]
  - Brain neoplasm [Recovered/Resolved]

NARRATIVE: CASE EVENT DATE: 20150514
